FAERS Safety Report 4730454-2 (Version None)
Quarter: 2005Q3

REPORT INFORMATION
  Report Type: 
  Country: None (occurrence: None)
  Receive Date: 20050801
  Receipt Date: 20050721
  Transmission Date: 20060218
  Serious: Yes (Life-Threatening, Hospitalization)
  Sender: FDA-Public Use
  Company Number: STA-AE-05-023

PATIENT
  Age: 48 Year
  Sex: Male

DRUGS (2)
  1. DIAZEPAM [Suspect]
     Indication: OVERDOSE
  2. PAROXETINE HCL [Suspect]
     Indication: OVERDOSE

REACTIONS (9)
  - ASPIRATION [None]
  - BLOOD PRESSURE INCREASED [None]
  - BRUGADA SYNDROME [None]
  - ELECTROCARDIOGRAM ST SEGMENT [None]
  - ELECTROCARDIOGRAM ST SEGMENT DEPRESSION [None]
  - ELECTROCARDIOGRAM ST SEGMENT ELEVATION [None]
  - ELECTROCARDIOGRAM T WAVE INVERSION [None]
  - LOSS OF CONSCIOUSNESS [None]
  - MULTIPLE DRUG OVERDOSE [None]
